FAERS Safety Report 16233040 (Version 1)
Quarter: 2019Q2

REPORT INFORMATION
  Report Type: Report from Study
  Country: US (occurrence: US)
  Receive Date: 20190424
  Receipt Date: 20190424
  Transmission Date: 20190711
  Serious: Yes (Hospitalization)
  Sender: FDA-Public Use
  Company Number: US-TAIHO ONCOLOGY  INC-EU-2019-00878

PATIENT
  Sex: Female

DRUGS (5)
  1. ENSURE [Concomitant]
     Active Substance: AMINO ACIDS\DEXTROSE\ELECTROLYTES NOS\SOYBEAN OIL\VITAMINS
     Dosage: NI
  2. LONSURF [Suspect]
     Active Substance: TIPIRACIL HYDROCHLORIDE\TRIFLURIDINE
     Indication: COLON CANCER
     Dosage: PATIENT COMPLETED TWO OR THREE CYCLES.?LONSURF DISCONTINUED ON AN UNKNOWN DAY.
     Route: 048
     Dates: start: 20190201, end: 2019
  3. PREDNISONE. [Concomitant]
     Active Substance: PREDNISONE
     Indication: AUTOIMMUNE DISORDER
  4. MEPROBAMATE. [Concomitant]
     Active Substance: MEPROBAMATE
     Dosage: NI
  5. TIMOLOL. [Concomitant]
     Active Substance: TIMOLOL
     Dosage: NI

REACTIONS (12)
  - Loss of consciousness [Unknown]
  - Back injury [Unknown]
  - Fall [Unknown]
  - Hypophagia [Unknown]
  - Asthenia [Unknown]
  - Dehydration [Unknown]
  - Confusional state [Unknown]
  - Feeling abnormal [Unknown]
  - Weight decreased [Unknown]
  - Mobility decreased [Unknown]
  - Decreased appetite [Unknown]
  - Eating disorder [Unknown]

NARRATIVE: CASE EVENT DATE: 2019
